FAERS Safety Report 23141044 (Version 7)
Quarter: 2024Q1

REPORT INFORMATION
  Report Type: Spontaneous
  Country: CA (occurrence: CA)
  Receive Date: 20231103
  Receipt Date: 20240327
  Transmission Date: 20240410
  Serious: Yes (Other)
  Sender: FDA-Public Use
  Company Number: CA-CELLTRION INC.-2023CA014105

PATIENT

DRUGS (14)
  1. INFLECTRA [Suspect]
     Active Substance: INFLIXIMAB-DYYB
     Indication: Inflammatory bowel disease
     Dosage: 1 DF
     Route: 042
  2. INFLECTRA [Suspect]
     Active Substance: INFLIXIMAB-DYYB
     Indication: Crohn^s disease
     Dosage: 5 MG/KG, EVERY 8 WEEKS
     Route: 042
     Dates: start: 20230825, end: 20231129
  3. INFLECTRA [Suspect]
     Active Substance: INFLIXIMAB-DYYB
     Dosage: 400 MG, AFTER 2 WEEKS (EVERY 8 WEEKS)
     Route: 042
     Dates: start: 20230908
  4. INFLECTRA [Suspect]
     Active Substance: INFLIXIMAB-DYYB
     Dosage: 400 MG, AFTER 2 WEEKS (EVERY 8 WEEKS)
     Route: 042
     Dates: start: 20230908
  5. INFLECTRA [Suspect]
     Active Substance: INFLIXIMAB-DYYB
     Dosage: 400 MG, WEEK 6 (EVERY 8 WEEKS)
     Route: 042
     Dates: start: 20231003
  6. INFLECTRA [Suspect]
     Active Substance: INFLIXIMAB-DYYB
     Dosage: 415 MG AFTER 8 WEEKS AND 1 DAY
     Route: 042
     Dates: start: 20231129
  7. INFLECTRA [Suspect]
     Active Substance: INFLIXIMAB-DYYB
     Dosage: 10 MG/KG EVERY 4 WEEKS (830MG EVERY 4 WEEKS)
     Route: 042
     Dates: start: 20231227
  8. INFLECTRA [Suspect]
     Active Substance: INFLIXIMAB-DYYB
     Dosage: 10 MG/KG EVERY 4 WEEKS (825 MG AFTER 4 WEEKS)
     Route: 042
     Dates: start: 20240124
  9. INFLECTRA [Suspect]
     Active Substance: INFLIXIMAB-DYYB
     Dosage: 10 MG/KG EVERY 4 WEEK (810 MG 3 WEEKS 6 DAYS)
     Route: 042
     Dates: start: 20240220
  10. INFLECTRA [Suspect]
     Active Substance: INFLIXIMAB-DYYB
     Dosage: 10 MG/KG EVERY 4 WEEK (810MG AFTER 4 WEEKS)
     Route: 042
     Dates: start: 20240319
  11. ASPIRIN [Concomitant]
     Active Substance: ASPIRIN
     Dosage: 1 DF
  12. PREDNISONE [Concomitant]
     Active Substance: PREDNISONE
     Dosage: 1 DF
  13. RAMIPRIL [Concomitant]
     Active Substance: RAMIPRIL
     Dosage: 1 DF
  14. VITALUX-S [Concomitant]
     Dosage: 1 DF

REACTIONS (11)
  - Prostate cancer [Recovered/Resolved]
  - Barrett^s oesophagus [Unknown]
  - Neovascular age-related macular degeneration [Recovering/Resolving]
  - Intestinal metaplasia [Unknown]
  - Drug level decreased [Unknown]
  - Condition aggravated [Recovering/Resolving]
  - Arthralgia [Recovered/Resolved]
  - Blood pressure increased [Unknown]
  - Diverticulum intestinal [Unknown]
  - Arthralgia [Recovered/Resolved]
  - Off label use [Unknown]

NARRATIVE: CASE EVENT DATE: 20230101
